FAERS Safety Report 17037353 (Version 1)
Quarter: 2019Q4

REPORT INFORMATION
  Report Type: Spontaneous
  Country: US (occurrence: US)
  Receive Date: 20191016
  Receipt Date: 20191016
  Transmission Date: 20200122
  Serious: No
  Sender: FDA-Public Use
  Company Number: None

PATIENT
  Age: 67 Year
  Sex: Female

DRUGS (1)
  1. SIMPONI [Suspect]
     Active Substance: GOLIMUMAB
     Dosage: ?          OTHER FREQUENCY:OTHER;?
     Route: 058
     Dates: start: 20190710

REACTIONS (5)
  - Fatigue [None]
  - Musculoskeletal pain [None]
  - Pain in extremity [None]
  - Oedema peripheral [None]
  - Limb discomfort [None]

NARRATIVE: CASE EVENT DATE: 20191016
